FAERS Safety Report 25653907 (Version 1)
Quarter: 2025Q3

REPORT INFORMATION
  Report Type: Report from Study
  Country: US (occurrence: US)
  Receive Date: 20250807
  Receipt Date: 20250807
  Transmission Date: 20251021
  Serious: Yes (Hospitalization)
  Sender: MYLAN
  Company Number: US-MYLANLABS-2025M1065576

PATIENT
  Age: 18 Year
  Sex: Male

DRUGS (16)
  1. ALPRAZOLAM [Suspect]
     Active Substance: ALPRAZOLAM
     Indication: Product used for unknown indication
  2. ALPRAZOLAM [Suspect]
     Active Substance: ALPRAZOLAM
     Route: 048
  3. ALPRAZOLAM [Suspect]
     Active Substance: ALPRAZOLAM
     Route: 048
  4. ALPRAZOLAM [Suspect]
     Active Substance: ALPRAZOLAM
  5. PREDNISONE [Suspect]
     Active Substance: PREDNISONE
     Indication: Product used for unknown indication
  6. PREDNISONE [Suspect]
     Active Substance: PREDNISONE
     Route: 048
  7. PREDNISONE [Suspect]
     Active Substance: PREDNISONE
     Route: 048
  8. PREDNISONE [Suspect]
     Active Substance: PREDNISONE
  9. BENZONATATE [Suspect]
     Active Substance: BENZONATATE
     Indication: Product used for unknown indication
  10. BENZONATATE [Suspect]
     Active Substance: BENZONATATE
     Route: 048
  11. BENZONATATE [Suspect]
     Active Substance: BENZONATATE
     Route: 048
  12. BENZONATATE [Suspect]
     Active Substance: BENZONATATE
  13. LITHIUM [Suspect]
     Active Substance: LITHIUM
     Indication: Product used for unknown indication
  14. LITHIUM [Suspect]
     Active Substance: LITHIUM
     Route: 048
  15. LITHIUM [Suspect]
     Active Substance: LITHIUM
     Route: 048
  16. LITHIUM [Suspect]
     Active Substance: LITHIUM

REACTIONS (1)
  - Intentional product use issue [Unknown]
